FAERS Safety Report 8608366-3 (Version None)
Quarter: 2012Q3

REPORT INFORMATION
  Report Type: 
  Country: None (occurrence: None)
  Receive Date: 20120821
  Receipt Date: 20120816
  Transmission Date: 20120928
  Serious: Yes (Hospitalization)
  Sender: FDA-Public Use
  Company Number: US-ROCHE-1103216

PATIENT
  Sex: Female
  Weight: 90.8 kg

DRUGS (1)
  1. XELODA [Suspect]
     Indication: PANCREATIC CARCINOMA
     Route: 048
     Dates: start: 20120207, end: 20120718

REACTIONS (2)
  - ARTERIAL HAEMORRHAGE [None]
  - THROMBOSIS [None]
